FAERS Safety Report 12578716 (Version 2)
Quarter: 2017Q4

REPORT INFORMATION
  Report Type: Report from Study
  Country: GB (occurrence: GB)
  Receive Date: 20160721
  Receipt Date: 20171011
  Transmission Date: 20180320
  Serious: Yes (Hospitalization, Other)
  Sender: FDA-Public Use
  Company Number: GB-AMGEN-GBRSL2016092058

PATIENT
  Age: 66 Year
  Sex: Male

DRUGS (2)
  1. ARANESP [Suspect]
     Active Substance: DARBEPOETIN ALFA
     Dosage: 100 MUG, UNK
     Route: 065
  2. ARANESP [Suspect]
     Active Substance: DARBEPOETIN ALFA
     Indication: PRODUCT USED FOR UNKNOWN INDICATION
     Dosage: 60 MUG, UNK
     Route: 065

REACTIONS (7)
  - Pleurisy [Not Recovered/Not Resolved]
  - Peritonitis [Not Recovered/Not Resolved]
  - Blood disorder [Not Recovered/Not Resolved]
  - Device related infection [Unknown]
  - Peritoneal dialysis complication [Unknown]
  - Prostatic disorder [Not Recovered/Not Resolved]
  - Peritoneal dialysis [Unknown]

NARRATIVE: CASE EVENT DATE: 201607
